FAERS Safety Report 24886552 (Version 2)
Quarter: 2025Q1

REPORT INFORMATION
  Report Type: Spontaneous
  Country: US (occurrence: US)
  Receive Date: 20250126
  Receipt Date: 20250213
  Transmission Date: 20250409
  Serious: No
  Sender: DR REDDYS
  Company Number: US-DRL-USA-USA/2025/01/000789

PATIENT
  Age: 20 Year
  Sex: Female

DRUGS (1)
  1. ZENATANE [Suspect]
     Active Substance: ISOTRETINOIN
     Indication: Acne
     Dosage: ONE TABLET A DAY
     Route: 065
     Dates: start: 20241201, end: 20250101

REACTIONS (1)
  - Back pain [Unknown]
